FAERS Safety Report 5154597-7 (Version None)
Quarter: 2006Q4

REPORT INFORMATION
  Report Type: 
  Country: None (occurrence: None)
  Receive Date: 20061114
  Receipt Date: 20061031
  Transmission Date: 20070319
  Serious: Yes (Other)
  Sender: FDA-Public Use
  Company Number: 2006BL006287

PATIENT
  Age: 58 Year
  Sex: Male

DRUGS (3)
  1. DEXAMETHASONE [Suspect]
     Indication: LEUKAEMIA PLASMACYTIC
     Dosage: 40 MILLIGRAMSP 4 CYCLES
  2. ADRIAMYCIN PFS [Suspect]
     Indication: LEUKAEMIA PLASMACYTIC
     Dosage: 9 MILLIGRAMS PER SQUARE METER; 4 CYCLES
  3. VELCADE [Suspect]
     Indication: LEUKAEMIA PLASMACYTIC
     Dosage: 4 CYCLES 1.30MG/SQ METER

REACTIONS (2)
  - HERPES ZOSTER DISSEMINATED [None]
  - STEM CELL TRANSPLANT [None]
